FAERS Safety Report 18043705 (Version 2)
Quarter: 2020Q3

REPORT INFORMATION
  Report Type: Spontaneous
  Country: JP (occurrence: JP)
  Receive Date: 20200720
  Receipt Date: 20200805
  Transmission Date: 20201103
  Serious: Yes (Hospitalization, Other)
  Sender: FDA-Public Use
  Company Number: JP-GLAXOSMITHKLINE-JP2020JPN130045

PATIENT
  Age: 6 Year
  Sex: Female

DRUGS (18)
  1. GABAPENTIN. [Suspect]
     Active Substance: GABAPENTIN
     Indication: PAROXYSMAL SYMPATHETIC HYPERACTIVITY
     Dosage: UNK
  2. CLONAZEPAM. [Concomitant]
     Active Substance: CLONAZEPAM
     Indication: EPILEPSY
     Dosage: 0.1 MG/KG, 1D
     Route: 048
  3. GABAPENTIN. [Suspect]
     Active Substance: GABAPENTIN
     Dosage: 40 MG/KG, 1D
  4. VALPROATE SODIUM. [Suspect]
     Active Substance: VALPROATE SODIUM
     Indication: EPILEPSY
     Dosage: 16 MG/KG, 1D
     Route: 048
  5. PHENYTOIN. [Suspect]
     Active Substance: PHENYTOIN
     Dosage: UNK UNK, 1D
  6. LACOSAMIDE. [Concomitant]
     Active Substance: LACOSAMIDE
     Indication: EPILEPSY
     Dosage: 8 MG/KG, 1D
     Route: 048
  7. THIOPENTAL SODIUM. [Concomitant]
     Active Substance: THIOPENTAL SODIUM
     Dosage: UNK
     Route: 042
  8. GABAPENTIN. [Suspect]
     Active Substance: GABAPENTIN
     Dosage: UNK UNK, 1D
  9. LAMICTAL [Suspect]
     Active Substance: LAMOTRIGINE
     Indication: EPILEPSY
     Dosage: 3.6 MG/KG, 1D
     Route: 048
  10. PHENOBARBITAL. [Concomitant]
     Active Substance: PHENOBARBITAL
     Indication: EPILEPSY
     Dosage: 10 MG/KG, 1D
     Route: 048
  11. PHENOBARBITAL. [Concomitant]
     Active Substance: PHENOBARBITAL
     Dosage: UNK UNK, 1D
     Route: 048
  12. PERAMPANEL [Concomitant]
     Active Substance: PERAMPANEL
     Indication: EPILEPSY
     Dosage: 0.15 MG/KG, 1D
     Route: 048
  13. GABAPENTIN. [Suspect]
     Active Substance: GABAPENTIN
     Dosage: 30 MG/KG, 1D
  14. VALPROATE SODIUM. [Suspect]
     Active Substance: VALPROATE SODIUM
     Dosage: 8 MG/KG, 1D
     Route: 048
  15. POTASSIUM BROMIDE [Concomitant]
     Active Substance: POTASSIUM BROMIDE
     Indication: EPILEPSY
     Dosage: 35 MG/KG, 1D
     Route: 048
  16. MIDAZOLAM. [Concomitant]
     Active Substance: MIDAZOLAM
     Dosage: UNK
  17. PHENYTOIN. [Suspect]
     Active Substance: PHENYTOIN
     Indication: EPILEPSY
     Dosage: 3 MG/KG, 1D
  18. TIZANIDINE. [Concomitant]
     Active Substance: TIZANIDINE
     Indication: PAROXYSMAL SYMPATHETIC HYPERACTIVITY
     Dosage: UNK

REACTIONS (15)
  - Tonic convulsion [Unknown]
  - Vomiting [Unknown]
  - Product use issue [Unknown]
  - Hepatic enzyme increased [Recovered/Resolved]
  - Inappropriate antidiuretic hormone secretion [Unknown]
  - Hypoxia [Unknown]
  - Hyponatraemia [Recovered/Resolved]
  - Flushing [Unknown]
  - Paroxysmal sympathetic hyperactivity [Unknown]
  - Mydriasis [Unknown]
  - Near drowning [Unknown]
  - Hypopnoea [Unknown]
  - Hyperammonaemia [Recovered/Resolved]
  - Liver disorder [Unknown]
  - Increased viscosity of bronchial secretion [Unknown]
